FAERS Safety Report 4691107-2 (Version None)
Quarter: 2005Q2

REPORT INFORMATION
  Report Type: 
  Country: None (occurrence: None)
  Receive Date: 20050610
  Receipt Date: 20050530
  Transmission Date: 20051028
  Serious: Yes (Hospitalization)
  Sender: FDA-Public Use
  Company Number: 2005068206

PATIENT
  Age: 63 Year
  Sex: Male
  Weight: 80.7403 kg

DRUGS (5)
  1. BEXTRA [Suspect]
     Indication: ARTHRALGIA
     Dosage: (10 MG, AS NECSSARY), ORAL
     Route: 048
     Dates: start: 20030605, end: 20030625
  2. BEXTRA [Suspect]
     Indication: OSTEOARTHRITIS
     Dosage: (10 MG, AS NECSSARY), ORAL
     Route: 048
     Dates: start: 20030605, end: 20030625
  3. LIPITOR [Concomitant]
  4. IMOVANE                (ZOPICLONE) [Concomitant]
  5. ASPIRIN [Concomitant]

REACTIONS (14)
  - BODY TEMPERATURE INCREASED [None]
  - DERMATITIS EXFOLIATIVE [None]
  - HYPERSENSITIVITY [None]
  - NASAL DISCOMFORT [None]
  - NASAL ULCER [None]
  - OEDEMA [None]
  - OSTEOARTHRITIS [None]
  - SCAB [None]
  - SCAR [None]
  - SENSORY LOSS [None]
  - SKIN REACTION [None]
  - SWELLING FACE [None]
  - VARICELLA [None]
  - VIRAL INFECTION [None]
